FAERS Safety Report 23738684 (Version 2)
Quarter: 2024Q2

REPORT INFORMATION
  Report Type: Report from Study
  Country: US (occurrence: US)
  Receive Date: 20240412
  Receipt Date: 20240422
  Transmission Date: 20240716
  Serious: Yes (Other)
  Sender: FDA-Public Use
  Company Number: US-ABBVIE-5286343

PATIENT
  Age: 76 Year
  Sex: Male

DRUGS (2)
  1. SKYRIZI [Suspect]
     Active Substance: RISANKIZUMAB-RZAA
     Indication: Psoriasis
     Route: 058
     Dates: start: 20221118
  2. SKYRIZI [Suspect]
     Active Substance: RISANKIZUMAB-RZAA
     Route: 058
     Dates: start: 202401

REACTIONS (6)
  - Vascular occlusion [Unknown]
  - Therapeutic response shortened [Unknown]
  - Unevaluable event [Unknown]
  - Psoriasis [Unknown]
  - Poor peripheral circulation [Unknown]
  - Pain [Unknown]

NARRATIVE: CASE EVENT DATE: 20230310
